FAERS Safety Report 14273653 (Version 1)
Quarter: 2017Q4

REPORT INFORMATION
  Report Type: Spontaneous
  Country: US (occurrence: US)
  Receive Date: 20171211
  Receipt Date: 20171211
  Transmission Date: 20180321
  Serious: Yes (Hospitalization, Other)
  Sender: FDA-Public Use
  Company Number: US-OTSUKA-2017_018115

PATIENT
  Sex: Female

DRUGS (6)
  1. ABILIFY [Suspect]
     Active Substance: ARIPIPRAZOLE
     Indication: CATATONIA
     Dosage: (1 DF = 2MG-25MG)
     Route: 065
  2. ABILIFY [Suspect]
     Active Substance: ARIPIPRAZOLE
     Indication: BIPOLAR DISORDER
     Dosage: 1 DF = 2MG-25MG
     Route: 065
     Dates: start: 200209
  3. ABILIFY [Suspect]
     Active Substance: ARIPIPRAZOLE
     Indication: ANXIETY
     Dosage: (1 DF = 2MG-25MG)
     Route: 065
  4. ABILIFY [Suspect]
     Active Substance: ARIPIPRAZOLE
     Indication: PSYCHOTIC DISORDER
     Dosage: (1 DF = 2MG-25MG)
     Route: 065
  5. ABILIFY [Suspect]
     Active Substance: ARIPIPRAZOLE
     Indication: INSOMNIA
     Dosage: (1 DF = 2MG-25MG)
     Route: 065
  6. ABILIFY [Suspect]
     Active Substance: ARIPIPRAZOLE
     Indication: MAJOR DEPRESSION
     Dosage: (1 DF = 2MG-25MG)
     Route: 065

REACTIONS (9)
  - Compulsive hoarding [Not Recovered/Not Resolved]
  - Compulsive sexual behaviour [Not Recovered/Not Resolved]
  - Eating disorder [Not Recovered/Not Resolved]
  - Maternal exposure during pregnancy [Unknown]
  - Unintended pregnancy [Unknown]
  - Abortion spontaneous [Unknown]
  - Product use issue [Unknown]
  - Gambling [Not Recovered/Not Resolved]
  - Compulsive shopping [Not Recovered/Not Resolved]
